FAERS Safety Report 9528488 (Version 1)
Quarter: 2013Q1

REPORT INFORMATION
  Report Type: Spontaneous
  Country: US (occurrence: None)
  Receive Date: 20130314
  Receipt Date: 20130314
  Transmission Date: 20140127
  Serious: Yes (Other)
  Sender: FDA-Public Use
  Company Number: 1212USA009589

PATIENT
  Age: 59 Year
  Sex: Male

DRUGS (3)
  1. PEG-INTRON [Suspect]
     Indication: HEPATITIS C
     Dates: start: 20121113
  2. RIBAVIRIN [Suspect]
     Indication: HEPATITIS C
     Dates: start: 20121113
  3. VICTREUS (BOCEPREVIR) CAPSULE [Suspect]
     Indication: HEPATITIS C
     Dates: start: 20121201

REACTIONS (4)
  - Gastric disorder [None]
  - Pain [None]
  - Pain [None]
  - Dysgeusia [None]
